FAERS Safety Report 24896248 (Version 1)
Quarter: 2025Q1

REPORT INFORMATION
  Report Type: Spontaneous
  Country: JP (occurrence: JP)
  Receive Date: 20250128
  Receipt Date: 20250128
  Transmission Date: 20250409
  Serious: Yes (Other)
  Sender: PERRIGO
  Company Number: JP-PERRIGO-24JP011663

PATIENT
  Age: 28 Year
  Sex: Female
  Weight: 42 kg

DRUGS (1)
  1. LEVONORGESTREL [Suspect]
     Active Substance: LEVONORGESTREL
     Indication: Post coital contraception
     Route: 048
     Dates: start: 20241125, end: 20241125

REACTIONS (3)
  - Abortion missed [Recovered/Resolved]
  - Pregnancy after post coital contraception [Recovered/Resolved]
  - Abortion induced [Recovered/Resolved]

NARRATIVE: CASE EVENT DATE: 20241213
